FAERS Safety Report 13826870 (Version 1)
Quarter: 2017Q3

REPORT INFORMATION
  Report Type: Spontaneous
  Country: US (occurrence: US)
  Receive Date: 20170802
  Receipt Date: 20170802
  Transmission Date: 20171127
  Serious: No
  Sender: FDA-Public Use
  Company Number: US-ROCHE-656156

PATIENT
  Sex: Female

DRUGS (1)
  1. BONIVA [Suspect]
     Active Substance: IBANDRONATE SODIUM
     Indication: PRODUCT USED FOR UNKNOWN INDICATION
     Route: 048
     Dates: start: 20090806, end: 20090906

REACTIONS (6)
  - Chills [Unknown]
  - Vomiting [Unknown]
  - Pain [Unknown]
  - Nausea [Unknown]
  - Abdominal discomfort [Unknown]
  - Headache [Unknown]
